FAERS Safety Report 16244201 (Version 1)
Quarter: 2019Q2

REPORT INFORMATION
  Report Type: Other
  Country: FR (occurrence: FR)
  Receive Date: 20190426
  Receipt Date: 20190426
  Transmission Date: 20190711
  Serious: Yes (Other)
  Sender: FDA-Public Use
  Company Number: FR-PROVELL PHARMACEUTICALS-2066276

PATIENT
  Sex: Female
  Weight: 1.24 kg

DRUGS (1)
  1. EUTHYROX [Suspect]
     Active Substance: LEVOTHYROXINE SODIUM
     Indication: AUTOIMMUNE THYROIDITIS

REACTIONS (25)
  - External ear disorder [None]
  - Low birth weight baby [None]
  - Posterior cortical atrophy [None]
  - Fat tissue decreased [None]
  - Foetal exposure during pregnancy [Recovered/Resolved]
  - Blood glucose decreased [None]
  - Microgenia [None]
  - Cardiac aneurysm [None]
  - Hepatosplenomegaly [None]
  - Fontanelle depressed [None]
  - Microphthalmos [None]
  - Jaundice neonatal [None]
  - Electroencephalogram abnormal [None]
  - Dysmorphism [None]
  - Disseminated intravascular coagulation [None]
  - Congenital hyperthyroidism [None]
  - Polymicrogyria [None]
  - Head circumference abnormal [None]
  - Body height decreased [None]
  - Cardiomyopathy [None]
  - Congenital hydrocephalus [None]
  - Microcephaly [None]
  - Motor neurone disease [None]
  - Goitre [None]
  - Apgar score low [None]
